FAERS Safety Report 8057235-9 (Version None)
Quarter: 2012Q1

REPORT INFORMATION
  Report Type: 
  Country: None (occurrence: None)
  Receive Date: 20120119
  Receipt Date: 20120113
  Transmission Date: 20120608
  Serious: Yes (Other)
  Sender: FDA-Public Use
  Company Number: PHHY2012AR003402

PATIENT
  Sex: Female

DRUGS (1)
  1. TRILEPTAL [Suspect]
     Indication: MENTAL DISORDER
     Dosage: 1 DF,DAILY
     Route: 048

REACTIONS (3)
  - EAR INFECTION [None]
  - NERVOUSNESS [None]
  - AMNESIA [None]
